FAERS Safety Report 9082317 (Version 1)
Quarter: 2013Q1

REPORT INFORMATION
  Report Type: Spontaneous
  Country: US (occurrence: US)
  Receive Date: 20130131
  Receipt Date: 20130131
  Transmission Date: 20140127
  Serious: Yes (Hospitalization)
  Sender: FDA-Public Use
  Company Number: US-009507513-1301USA011003

PATIENT
  Age: 78 Year
  Sex: Male

DRUGS (4)
  1. BCG VACCINE USP [Suspect]
     Indication: BLADDER CANCER
     Dosage: UNK
     Route: 043
  2. BCG VACCINE USP [Suspect]
     Dosage: UNK
     Route: 043
  3. BCG VACCINE USP [Suspect]
     Dosage: UNK
     Route: 043
  4. BCG VACCINE USP [Suspect]
     Dosage: UNK
     Route: 043

REACTIONS (1)
  - Sepsis [Recovered/Resolved]
